FAERS Safety Report 13264476 (Version 2)
Quarter: 2017Q2

REPORT INFORMATION
  Report Type: Spontaneous
  Country: US (occurrence: US)
  Receive Date: 20170223
  Receipt Date: 20170412
  Transmission Date: 20170830
  Serious: Yes (Hospitalization, Other)
  Sender: FDA-Public Use
  Company Number: US-WEST-WARD PHARMACEUTICALS CORP.-US-H14001-17-00054

PATIENT
  Age: 50 Year
  Sex: Male

DRUGS (8)
  1. INFUMORPH [Suspect]
     Active Substance: MORPHINE SULFATE
     Indication: PAIN
     Route: 037
  2. INFUMORPH [Suspect]
     Active Substance: MORPHINE SULFATE
     Route: 037
  3. INFUMORPH [Suspect]
     Active Substance: MORPHINE SULFATE
     Route: 037
  4. MOTRIN [Concomitant]
     Active Substance: IBUPROFEN
     Indication: PRODUCT USED FOR UNKNOWN INDICATION
     Route: 065
  5. INFUMORPH [Suspect]
     Active Substance: MORPHINE SULFATE
     Route: 037
  6. INFUMORPH [Suspect]
     Active Substance: MORPHINE SULFATE
     Route: 037
  7. INFUMORPH [Suspect]
     Active Substance: MORPHINE SULFATE
     Indication: CANCER PAIN
     Route: 037
     Dates: start: 20161209
  8. INFUMORPH [Suspect]
     Active Substance: MORPHINE SULFATE
     Route: 037

REACTIONS (6)
  - Pain [Not Recovered/Not Resolved]
  - Dyspnoea [Not Recovered/Not Resolved]
  - Drug ineffective [Not Recovered/Not Resolved]
  - Fluid retention [Not Recovered/Not Resolved]
  - Breakthrough pain [Not Recovered/Not Resolved]
  - Drug tolerance increased [Not Recovered/Not Resolved]

NARRATIVE: CASE EVENT DATE: 20170206
